FAERS Safety Report 10045127 (Version 1)
Quarter: 2014Q1

REPORT INFORMATION
  Report Type: Spontaneous
  Country: IT (occurrence: IT)
  Receive Date: 20140328
  Receipt Date: 20140328
  Transmission Date: 20141002
  Serious: Yes (Hospitalization)
  Sender: FDA-Public Use
  Company Number: IT-BAYER-2014-043749

PATIENT
  Age: 72 Year
  Sex: Female

DRUGS (4)
  1. CARDIOASPIRIN [Suspect]
     Dosage: 1 DF, QD
     Route: 048
     Dates: end: 20140225
  2. ESOMEPRAZOLE [Suspect]
     Dosage: 1 DF, DAILY DOSE
     Route: 048
     Dates: end: 20140225
  3. IDROQUARK [Suspect]
     Dosage: 1 DF, DAILY DOSE
     Route: 048
     Dates: end: 20140225
  4. ANASTROZOLE [Suspect]

REACTIONS (1)
  - Urticaria papular [Recovering/Resolving]
